FAERS Safety Report 19035824 (Version 1)
Quarter: 2021Q1

REPORT INFORMATION
  Report Type: Spontaneous
  Country: US (occurrence: US)
  Receive Date: 20210321
  Receipt Date: 20210321
  Transmission Date: 20210420
  Serious: Yes (Death, Other)
  Sender: FDA-Public Use
  Company Number: US-TEVA-2021-US-1892380

PATIENT
  Sex: Female

DRUGS (20)
  1. OXYFAST [Suspect]
     Active Substance: OXYCODONE
     Route: 065
  2. OXYCONTIN [Suspect]
     Active Substance: OXYCODONE HYDROCHLORIDE
     Route: 065
  3. OXY IR [Suspect]
     Active Substance: OXYCODONE HYDROCHLORIDE
     Route: 065
  4. MSIR [Suspect]
     Active Substance: MORPHINE SULFATE
     Route: 065
  5. RYZOLT [Suspect]
     Active Substance: TRAMADOL HYDROCHLORIDE
     Route: 065
  6. HYDROMORPHONE [Suspect]
     Active Substance: HYDROMORPHONE
     Route: 048
  7. OXYCODONE [Suspect]
     Active Substance: OXYCODONE
     Route: 065
  8. HYDROCODONE AND ACETAMINOPHEN [Suspect]
     Active Substance: ACETAMINOPHEN\HYDROCODONE
     Route: 065
  9. MORPHINE [Suspect]
     Active Substance: MORPHINE
     Route: 065
  10. DILAUDID [Suspect]
     Active Substance: HYDROMORPHONE HYDROCHLORIDE
     Route: 065
  11. HYSINGLA ER [Suspect]
     Active Substance: HYDROCODONE BITARTRATE
     Route: 065
  12. TRAMADOL. [Suspect]
     Active Substance: TRAMADOL
     Route: 065
  13. PALLADONE [Suspect]
     Active Substance: HYDROMORPHONE HYDROCHLORIDE
     Route: 065
  14. HYDROMORPHONE [Suspect]
     Active Substance: HYDROMORPHONE
     Route: 065
  15. BUPRENORPHINE. [Suspect]
     Active Substance: BUPRENORPHINE
     Route: 062
  16. OXYCODONE [Suspect]
     Active Substance: OXYCODONE
     Route: 065
  17. OXYCODONE AND ACETAMINOPHEN [Suspect]
     Active Substance: ACETAMINOPHEN\OXYCODONE HYDROCHLORIDE
     Route: 065
  18. MS CONTIN [Suspect]
     Active Substance: MORPHINE SULFATE
     Route: 065
  19. BUTRANS [Suspect]
     Active Substance: BUPRENORPHINE
     Route: 065
  20. DHC PLUS [Suspect]
     Active Substance: ACETAMINOPHEN\CAFFEINE\DIHYDROCODEINE BITARTRATE
     Route: 065

REACTIONS (6)
  - Dependence [Unknown]
  - Personal relationship issue [Unknown]
  - Overdose [Unknown]
  - Toxicity to various agents [Fatal]
  - Anxiety [Unknown]
  - Substance use disorder [Unknown]
